FAERS Safety Report 9174019 (Version 1)
Quarter: 2013Q1

REPORT INFORMATION
  Report Type: Spontaneous
  Country: JP (occurrence: JP)
  Receive Date: 20130320
  Receipt Date: 20130320
  Transmission Date: 20140127
  Serious: Yes (Other)
  Sender: FDA-Public Use
  Company Number: PHHY2013JP026576

PATIENT
  Age: 55 Year
  Sex: Female
  Weight: 48 kg

DRUGS (4)
  1. CARBOPLATIN SANDOZ [Suspect]
     Indication: ADENOCARCINOMA
  2. PACLITAXEL [Suspect]
     Indication: ADENOCARCINOMA
     Dosage: 175 MG/M2, UNK
  3. DOCETAXEL [Concomitant]
     Indication: MALIGNANT PERITONEAL NEOPLASM
     Dosage: 70 MG/M2, UNK
  4. DOCETAXEL [Concomitant]
     Dosage: 60 MG/M2, UNK

REACTIONS (3)
  - Myalgia [Unknown]
  - Hypersensitivity [Unknown]
  - Malignant peritoneal neoplasm [Recovered/Resolved]
